FAERS Safety Report 6828225-6 (Version None)
Quarter: 2010Q3

REPORT INFORMATION
  Report Type: 
  Country: None (occurrence: None)
  Receive Date: 20100709
  Receipt Date: 20070131
  Transmission Date: 20110219
  Serious: No
  Sender: FDA-Public Use
  Company Number: US-PFIZER INC-2007009001

PATIENT
  Sex: Female
  Weight: 52.62 kg

DRUGS (6)
  1. CHANTIX [Suspect]
     Indication: SMOKING CESSATION THERAPY
     Dates: start: 20070101
  2. DIPHENHYDRAMINE HYDROCHLORIDE [Concomitant]
     Indication: HEADACHE
  3. DIPHENHYDRAMINE HYDROCHLORIDE [Concomitant]
     Indication: EYE PRURITUS
  4. DIPHENHYDRAMINE HYDROCHLORIDE [Concomitant]
     Indication: SLEEP DISORDER
  5. LEXAPRO [Concomitant]
     Dates: end: 20060101
  6. VITAMINS [Concomitant]

REACTIONS (4)
  - DRUG HYPERSENSITIVITY [None]
  - EYE PRURITUS [None]
  - EYE SWELLING [None]
  - HEADACHE [None]
